FAERS Safety Report 10042836 (Version 1)
Quarter: 2014Q1

REPORT INFORMATION
  Report Type: Spontaneous
  Country: US (occurrence: US)
  Receive Date: 20140327
  Receipt Date: 20140327
  Transmission Date: 20141002
  Serious: Yes (Other)
  Sender: FDA-Public Use
  Company Number: US-RB-064923-14

PATIENT
  Sex: Male

DRUGS (7)
  1. SUBOXONE FILM [Suspect]
     Dosage: SUBOXONE FILM; DOSING DETAILS UNKNOWN
     Route: 065
     Dates: start: 2004, end: 2013
  2. SUBOXONE FILM [Suspect]
     Dosage: SUBOXONE FILM; ONE STRIP A DAY
     Route: 065
     Dates: start: 2013, end: 2013
  3. SUBOXONE FILM [Suspect]
     Indication: DRUG ABUSE
     Dosage: SUBOXONE FILM; TAPERED DOWN TO A HALF STRIP DAILY
     Route: 065
     Dates: start: 201308, end: 2013
  4. SUBOXONE FILM [Suspect]
     Dosage: SUBOXONE FILM; HALF A STRIP EVERY OTHER DAY
     Route: 065
     Dates: start: 2013, end: 2013
  5. SUBOXONE FILM [Suspect]
     Dosage: SUBOXONE FILM; CUTTING THE STRIPS INTO QUARTERS AND THOSE QUARTERS IN HALF
     Route: 065
     Dates: start: 201401, end: 201401
  6. ALCOHOL [Suspect]
     Indication: PRODUCT USED FOR UNKNOWN INDICATION
     Dosage: DOSING DETAILS UNKNOWN
     Route: 048
     Dates: end: 2014
  7. COCAINE [Suspect]
     Indication: PRODUCT USED FOR UNKNOWN INDICATION
     Dosage: DOSING DETAILS UNKNOWN
     Route: 065
     Dates: end: 2013

REACTIONS (10)
  - Alcohol abuse [Recovered/Resolved]
  - Drug abuse [Recovered/Resolved]
  - Drug dependence [Recovered/Resolved]
  - Intentional underdose [Recovered/Resolved]
  - Wrong technique in drug usage process [Recovered/Resolved]
  - Drug withdrawal syndrome [Recovered/Resolved]
  - Mental disorder [Recovered/Resolved]
  - Suicidal ideation [Recovered/Resolved]
  - Feeling of despair [Recovered/Resolved]
  - Tremor [Recovered/Resolved]
